FAERS Safety Report 12828793 (Version 1)
Quarter: 2016Q4

REPORT INFORMATION
  Report Type: Spontaneous
  Country: US (occurrence: US)
  Receive Date: 20161007
  Receipt Date: 20161007
  Transmission Date: 20170207
  Serious: No
  Sender: FDA-Public Use
  Company Number: US-SA-2015SA191955

PATIENT
  Age: 42 Year
  Sex: Female

DRUGS (7)
  1. AUBAGIO [Suspect]
     Active Substance: TERIFLUNOMIDE
     Indication: MULTIPLE SCLEROSIS
     Route: 048
  2. MODAFINIL. [Concomitant]
     Active Substance: MODAFINIL
  3. PROPRANOLOL HYDROCHLORIDE. [Concomitant]
     Active Substance: PROPRANOLOL HYDROCHLORIDE
  4. FUROSEMIDE. [Concomitant]
     Active Substance: FUROSEMIDE
  5. GABAPENTIN. [Concomitant]
     Active Substance: GABAPENTIN
  6. PREDNISONE. [Concomitant]
     Active Substance: PREDNISONE
  7. LYRICA [Concomitant]
     Active Substance: PREGABALIN

REACTIONS (3)
  - Alopecia [Unknown]
  - Limb discomfort [Unknown]
  - Hypoaesthesia [Unknown]
